FAERS Safety Report 9386671 (Version 1)
Quarter: 2013Q3

REPORT INFORMATION
  Report Type: Spontaneous
  Country: US (occurrence: US)
  Receive Date: 20130708
  Receipt Date: 20130708
  Transmission Date: 20140515
  Serious: No
  Sender: FDA-Public Use
  Company Number: US-PFIZER INC-2013197555

PATIENT
  Sex: Male

DRUGS (2)
  1. CELEBREX [Suspect]
     Dosage: 400 MG (TWO CAPSULES OF 200MG), 1X/DAY
     Dates: start: 201209, end: 2013
  2. CELEBREX [Suspect]
     Dosage: 200 MG, 1X/DAY
     Dates: start: 2013, end: 20130624

REACTIONS (2)
  - Obesity [Unknown]
  - Headache [Unknown]
